FAERS Safety Report 17856919 (Version 9)
Quarter: 2020Q4

REPORT INFORMATION
  Report Type: Report from Study
  Country: US (occurrence: US)
  Receive Date: 20200603
  Receipt Date: 20201022
  Transmission Date: 20210113
  Serious: Yes (Other)
  Sender: FDA-Public Use
  Company Number: NVSC2020US152327

PATIENT
  Sex: Female

DRUGS (4)
  1. PIQRAY [Suspect]
     Active Substance: ALPELISIB
     Indication: HER2 NEGATIVE BREAST CANCER
     Dosage: UNK
     Route: 048
  2. PIQRAY [Suspect]
     Active Substance: ALPELISIB
     Dosage: 300 MG, QD
     Route: 048
     Dates: start: 20200611
  3. PIQRAY [Suspect]
     Active Substance: ALPELISIB
     Dosage: 150 MG
     Route: 048
  4. PIQRAY [Suspect]
     Active Substance: ALPELISIB
     Dosage: HALF OF ONE PILL
     Route: 048

REACTIONS (22)
  - Blood cholesterol increased [Unknown]
  - Gastrooesophageal reflux disease [Unknown]
  - Heart rate irregular [Unknown]
  - Decreased appetite [Unknown]
  - Fatigue [Unknown]
  - Thyroid hormones increased [Unknown]
  - Constipation [Unknown]
  - Hypotension [Unknown]
  - Cardiac flutter [Unknown]
  - Dyspnoea [Unknown]
  - Anaemia [Unknown]
  - Incorrect dose administered [Recovered/Resolved with Sequelae]
  - Chest pain [Unknown]
  - Hepatic lesion [Unknown]
  - Hyperglycaemia [Unknown]
  - Abdominal discomfort [Unknown]
  - Chills [Unknown]
  - Dizziness [Unknown]
  - Weight decreased [Unknown]
  - Asthenia [Unknown]
  - Blood glucose increased [Unknown]
  - Product distribution issue [Unknown]
